FAERS Safety Report 11828858 (Version 2)
Quarter: 2015Q4

REPORT INFORMATION
  Report Type: Spontaneous
  Country: US (occurrence: US)
  Receive Date: 20151211
  Receipt Date: 20151223
  Transmission Date: 20160305
  Serious: No
  Sender: FDA-Public Use
  Company Number: US-ASTRAZENECA-2015SF21174

PATIENT
  Age: 24959 Day
  Sex: Male
  Weight: 145.2 kg

DRUGS (1)
  1. PULMICORT FLEXHALER [Suspect]
     Active Substance: BUDESONIDE
     Dosage: 180MCG THREE PUFFS TWICE DAILY
     Route: 055

REACTIONS (4)
  - Dyspnoea [Recovered/Resolved]
  - Device defective [Unknown]
  - Off label use [Not Recovered/Not Resolved]
  - Intentional device misuse [Unknown]

NARRATIVE: CASE EVENT DATE: 201511
